FAERS Safety Report 9779087 (Version 1)
Quarter: 2013Q4

REPORT INFORMATION
  Report Type: Spontaneous
  Country: US (occurrence: US)
  Receive Date: 20131223
  Receipt Date: 20131223
  Transmission Date: 20140711
  Serious: No
  Sender: FDA-Public Use
  Company Number: US-BAXTER-2013BAX002234

PATIENT
  Sex: 0

DRUGS (1)
  1. STERILE WATER FOR IRRIGATION, USP [Suspect]
     Indication: SURGERY

REACTIONS (2)
  - Wrong drug administered [Unknown]
  - No adverse event [Recovered/Resolved]
